FAERS Safety Report 8891742 (Version 1)
Quarter: 2012Q4

REPORT INFORMATION
  Report Type: Spontaneous
  Country: US (occurrence: None)
  Receive Date: 20121031
  Receipt Date: 20121031
  Transmission Date: 20130627
  Serious: Yes (Hospitalization, Disabling, Other)
  Sender: FDA-Public Use
  Company Number: ACO_32665_2012

PATIENT
  Age: 69 Year
  Sex: Female
  Weight: 62.6 kg

DRUGS (11)
  1. AMPYRA (DALFAMPRIDINE) TABLET, 10MG [Suspect]
     Indication: GAIT DISTURBANCE
     Dosage: 10 mg, bid, Oral
     Route: 048
     Dates: start: 20100916
  2. AMPYRA (DALFAMPRIDINE) TABLET, 10MG [Suspect]
     Indication: GAIT DISTURBANCE
     Dosage: 10 mg, qd
  3. COPAXONE (GLATIRAMER ACETATE) [Concomitant]
  4. VITAMIN D3 (COLECALCIFEROL) [Concomitant]
  5. CALCIUM (CALCIUM) [Concomitant]
  6. OMEGA 3 (FISH OIL) [Concomitant]
  7. EVENING PRIMROSE OIL (EVENING PRIMROSE OIL) [Concomitant]
  8. MULTIVITAMIN (VITAMINS NOS) [Concomitant]
  9. EVISTA (RALOXIFENE HYDROCHLORIDE) [Concomitant]
  10. TRIAMTERENE AND HYDROCHLOROTHIAZIDE (HYDROCHLOROTHIAZIDE, TRIAMTERENE) [Concomitant]
  11. NUEDEXTA (DEXTROMETHORPHAN HYDROBROMIDE, QUINIDINE SULFATE) [Concomitant]

REACTIONS (5)
  - Nerve compression [None]
  - Inappropriate schedule of drug administration [None]
  - Movement disorder [None]
  - Muscular weakness [None]
  - Fatigue [None]
